FAERS Safety Report 7826794-0 (Version None)
Quarter: 2011Q4

REPORT INFORMATION
  Report Type: 
  Country: None (occurrence: None)
  Receive Date: 20111020
  Receipt Date: 20111013
  Transmission Date: 20120403
  Serious: Yes (Hospitalization, Other)
  Sender: FDA-Public Use
  Company Number: CA-ABBOTT-11P-028-0864400-00

PATIENT
  Sex: Female
  Weight: 72.64 kg

DRUGS (3)
  1. HUMIRA [Suspect]
     Indication: PSORIASIS
     Route: 058
     Dates: start: 20080919, end: 20110626
  2. LEVOTHYROXINE SODIUM [Concomitant]
  3. LEVOTHYROXINE SODIUM [Concomitant]
     Indication: HYPOTHYROIDISM
     Route: 048
     Dates: start: 20080101

REACTIONS (6)
  - CHEST PAIN [None]
  - PULMONARY OEDEMA [None]
  - HYPOTHYROIDISM [None]
  - DYSPNOEA [None]
  - MYOCARDIAL INFARCTION [None]
  - GASTRIC ULCER [None]
